FAERS Safety Report 11104348 (Version 4)
Quarter: 2016Q3

REPORT INFORMATION
  Report Type: Report from Study
  Country: CA (occurrence: CA)
  Receive Date: 20150511
  Receipt Date: 20160706
  Transmission Date: 20161109
  Serious: Yes (Hospitalization)
  Sender: FDA-Public Use
  Company Number: CA-ABBVIE-15K-028-1387355-00

PATIENT
  Sex: Female

DRUGS (1)
  1. HUMIRA [Suspect]
     Active Substance: ADALIMUMAB
     Indication: CROHN^S DISEASE
     Route: 058
     Dates: start: 20150320, end: 201507

REACTIONS (4)
  - Gait disturbance [Recovering/Resolving]
  - Gastrointestinal obstruction [Recovered/Resolved]
  - Arthritis [Recovering/Resolving]
  - Dysgraphia [Recovering/Resolving]

NARRATIVE: CASE EVENT DATE: 2015
